FAERS Safety Report 22128694 (Version 2)
Quarter: 2023Q1

REPORT INFORMATION
  Report Type: Other
  Country: PK (occurrence: None)
  Receive Date: 20230323
  Receipt Date: 20230327
  Transmission Date: 20230418
  Serious: Yes (Other)
  Sender: FDA-Public Use
  Company Number: PK-ROCHE-3231755

PATIENT
  Age: 50 Year
  Sex: Female

DRUGS (2)
  1. RITUXIMAB [Suspect]
     Active Substance: RITUXIMAB
     Indication: Diffuse large B-cell lymphoma
     Dosage: RISTOVA 500MG-H1055B01.?RISTOVA 100MG-H0326B03,H1055B01,H0320B06.?8 CYCLES INSTEAD OF 4 CYCLES.
     Route: 041
     Dates: start: 20221121
  2. RITUXIMAB [Suspect]
     Active Substance: RITUXIMAB
     Indication: Follicular lymphoma
     Dosage: FREQUENCY INTERVAL: 3 WEEKS
     Route: 042
     Dates: start: 20230316

REACTIONS (2)
  - Intercepted product prescribing error [Unknown]
  - Follicular lymphoma [Unknown]

NARRATIVE: CASE EVENT DATE: 20230313
